FAERS Safety Report 5724783-3 (Version None)
Quarter: 2008Q2

REPORT INFORMATION
  Report Type: 
  Country: None (occurrence: None)
  Receive Date: 20080501
  Receipt Date: 20080501
  Transmission Date: 20081010
  Serious: Yes (Death, Hospitalization)
  Sender: FDA-Public Use
  Company Number: None

PATIENT
  Sex: Female
  Weight: 74.8435 kg

DRUGS (1)
  1. HEPARIN [Suspect]
     Indication: THROMBOSIS PROPHYLAXIS
     Dosage: IV
     Route: 042
     Dates: start: 20070423, end: 20070423

REACTIONS (2)
  - GRAFT THROMBOSIS [None]
  - SURGICAL PROCEDURE REPEATED [None]
